FAERS Safety Report 5189851-6 (Version None)
Quarter: 2006Q4

REPORT INFORMATION
  Report Type: 
  Country: None (occurrence: None)
  Receive Date: 20061215
  Receipt Date: 20061207
  Transmission Date: 20070319
  Serious: Yes (Death)
  Sender: FDA-Public Use
  Company Number: 2006152090

PATIENT
  Age: 69 Year
  Sex: Male
  Weight: 92 kg

DRUGS (11)
  1. FRAGMIN [Suspect]
     Dosage: 5000 I.U. (1 IN 1 D), SUBCUTANEOUS
     Route: 058
     Dates: end: 20061010
  2. EPREX [Suspect]
     Dosage: 10000 I.U. (3 IN 1 WK), SUBCUTANEOUS
     Route: 058
     Dates: end: 20061010
  3. MESTINON [Suspect]
     Dosage: 2 DF, ORAL
     Route: 048
     Dates: start: 20060615, end: 20061010
  4. IMURAN [Suspect]
     Dosage: 150 MG (50 MG, 3 IN 1 D), ORAL
     Route: 048
     Dates: start: 20060615, end: 20061010
  5. MEDROL [Concomitant]
  6. LANTUS [Concomitant]
  7. LASIX [Concomitant]
  8. FERROUS SULFATE TAB [Concomitant]
  9. POTASSIUM CHLORIDE [Concomitant]
  10. NICARDIPINE HYDROCHLORIDE [Concomitant]
  11. HYPERIUM (RILMENIDINE) [Concomitant]

REACTIONS (1)
  - CARDIO-RESPIRATORY ARREST [None]
